FAERS Safety Report 6420094-1 (Version None)
Quarter: 2009Q4

REPORT INFORMATION
  Report Type: 
  Country: None (occurrence: None)
  Receive Date: 20091029
  Receipt Date: 20091022
  Transmission Date: 20100525
  Serious: Yes (Other)
  Sender: FDA-Public Use
  Company Number: TH-PFIZER INC-2009280713

PATIENT
  Age: 70 Year

DRUGS (5)
  1. CELEBREX [Suspect]
     Indication: PAIN IN EXTREMITY
     Dosage: 200 MG, 1X/DAY
     Route: 048
     Dates: start: 20091002, end: 20091006
  2. CELEBREX [Suspect]
     Indication: ARTHRALGIA
  3. TENORMIN [Concomitant]
  4. NORVASC [Concomitant]
  5. GLUCOSAMINE [Concomitant]

REACTIONS (3)
  - HYPERTENSION [None]
  - PALPITATIONS [None]
  - TREMOR [None]
